FAERS Safety Report 6747685-2 (Version None)
Quarter: 2010Q2

REPORT INFORMATION
  Report Type: 
  Country: None (occurrence: None)
  Receive Date: 20100528
  Receipt Date: 20100518
  Transmission Date: 20101027
  Serious: Yes (Life-Threatening, Other)
  Sender: FDA-Public Use
  Company Number: IT-GENZYME-THYM-1001460

PATIENT
  Sex: Male
  Weight: 59 kg

DRUGS (2)
  1. THYMOGLOBULIN [Suspect]
     Indication: APLASTIC ANAEMIA
     Dosage: 3.75 MG/KG, QD
     Route: 042
     Dates: start: 20091202, end: 20091206
  2. SANDIMMUNE [Concomitant]
     Indication: APLASTIC ANAEMIA
     Dosage: 5 MG/KG, QD
     Route: 048
     Dates: start: 20091202, end: 20091231

REACTIONS (5)
  - CHOLESTASIS [None]
  - CLOSTRIDIUM DIFFICILE COLITIS [None]
  - CYTOMEGALOVIRUS INFECTION [None]
  - EPSTEIN-BARR VIRUS INFECTION [None]
  - GASTROINTESTINAL DISORDER [None]
